FAERS Safety Report 20976614 (Version 1)
Quarter: 2022Q2

REPORT INFORMATION
  Report Type: Spontaneous
  Country: US (occurrence: US)
  Receive Date: 20220617
  Receipt Date: 20220617
  Transmission Date: 20220720
  Serious: No
  Sender: FDA-Public Use
  Company Number: US-MYLANLABS-2022M1042141

PATIENT
  Age: 77 Year
  Sex: Female

DRUGS (2)
  1. ESTRADIOL [Suspect]
     Active Substance: ESTRADIOL
     Indication: Atrophy
     Dosage: 0.01 PERCENT, BID
     Route: 062
     Dates: start: 20220422
  2. ESTRADIOL [Suspect]
     Active Substance: ESTRADIOL
     Indication: Vaginal disorder
     Dosage: 0.01 PERCENT, BIWEEKLY
     Route: 062
     Dates: start: 20220508

REACTIONS (2)
  - Product leakage [Unknown]
  - Off label use [Unknown]

NARRATIVE: CASE EVENT DATE: 20220422
